FAERS Safety Report 6368014-2 (Version None)
Quarter: 2009Q3

REPORT INFORMATION
  Report Type: 
  Country: None (occurrence: None)
  Receive Date: 20090922
  Receipt Date: 20090915
  Transmission Date: 20100115
  Serious: Yes (Hospitalization, Other)
  Sender: FDA-Public Use
  Company Number: BR-JNJFOC-20090905021

PATIENT
  Age: 28 Year
  Sex: Female
  Weight: 78 kg

DRUGS (3)
  1. ORTHO EVRA [Suspect]
     Indication: CONTRACEPTION
     Dosage: ETHINYL ESTRADIOL 0.6 MG/ NORELGESTRIMIN 6 MG
     Route: 062
     Dates: start: 20080101
  2. AZITHROMYCIN [Interacting]
     Indication: HELICOBACTER INFECTION
     Route: 065
  3. CANDICORT [Interacting]
     Indication: VULVAL ERYTHEMA
     Route: 065

REACTIONS (10)
  - APPLICATION SITE ERYTHEMA [None]
  - APPLICATION SITE PRURITUS [None]
  - DRUG ADMINISTERED AT INAPPROPRIATE SITE [None]
  - DRUG INTERACTION [None]
  - GASTRITIS [None]
  - HELICOBACTER INFECTION [None]
  - VARICOSE VEIN [None]
  - VULVAL ERYTHEMA [None]
  - VULVOVAGINAL PRURITUS [None]
  - WOUND [None]
